FAERS Safety Report 18993133 (Version 1)
Quarter: 2021Q1

REPORT INFORMATION
  Report Type: Spontaneous
  Country: CN (occurrence: CN)
  Receive Date: 20210310
  Receipt Date: 20210310
  Transmission Date: 20210420
  Serious: Yes (Hospitalization)
  Sender: FDA-Public Use
  Company Number: CN-EISAI MEDICAL RESEARCH-EC-2021-088758

PATIENT
  Age: 89 Year
  Sex: Male

DRUGS (2)
  1. RABEPRAZOLE [Suspect]
     Active Substance: RABEPRAZOLE
     Indication: ANTACID THERAPY
     Route: 048
     Dates: start: 20201223, end: 20210215
  2. REBAMIPIDE [Suspect]
     Active Substance: REBAMIPIDE
     Indication: ANTACID THERAPY
     Route: 048
     Dates: start: 20201223, end: 20210115

REACTIONS (1)
  - Chronic kidney disease [Recovering/Resolving]

NARRATIVE: CASE EVENT DATE: 20210218
